FAERS Safety Report 24646635 (Version 1)
Quarter: 2024Q4

REPORT INFORMATION
  Report Type: Spontaneous
  Country: CN (occurrence: CN)
  Receive Date: 20241121
  Receipt Date: 20241121
  Transmission Date: 20250115
  Serious: Yes (Other)
  Sender: ABBVIE
  Company Number: CN-ABBVIE-6005474

PATIENT
  Age: 19 Year
  Sex: Female
  Weight: 64 kg

DRUGS (5)
  1. VENCLEXTA [Suspect]
     Active Substance: VENETOCLAX
     Indication: Neoplasm malignant
     Dosage: TIME INTERVAL: 0.33333333 DAYS: 300 MILLIGRAM
     Route: 048
     Dates: start: 20241031, end: 20241031
  2. VENCLEXTA [Suspect]
     Active Substance: VENETOCLAX
     Indication: Neoplasm malignant
     Dosage: TIME INTERVAL: 0.33333333 DAYS: 300 MILLIGRAM
     Route: 048
     Dates: start: 20241106, end: 20241106
  3. FLUDARABINE PHOSPHATE [Suspect]
     Active Substance: FLUDARABINE PHOSPHATE
     Indication: Hepatic function abnormal
     Dosage: 50 MILLIGRAM
     Route: 041
     Dates: start: 20241031, end: 20241105
  4. DEXTROSE [Suspect]
     Active Substance: DEXTROSE MONOHYDRATE
     Indication: Acute myeloid leukaemia
     Dosage: 500 MILLILITER
     Route: 041
     Dates: start: 20241031, end: 20241106
  5. CYTARABINE [Suspect]
     Active Substance: CYTARABINE
     Indication: Hepatic function abnormal
     Dosage: 3 GRAM
     Route: 041
     Dates: start: 20241031, end: 20241105

REACTIONS (5)
  - Platelet count decreased [Unknown]
  - White blood cell count decreased [Unknown]
  - Lymphocyte count decreased [Unknown]
  - Neutrophil count decreased [Unknown]
  - Myelosuppression [Unknown]

NARRATIVE: CASE EVENT DATE: 20241109
